FAERS Safety Report 8262921-1 (Version None)
Quarter: 2012Q2

REPORT INFORMATION
  Report Type: 
  Country: None (occurrence: None)
  Receive Date: 20120405
  Receipt Date: 20120402
  Transmission Date: 20120825
  Serious: Yes (Other)
  Sender: FDA-Public Use
  Company Number: GB-GLAXOSMITHKLINE-B0792624A

PATIENT
  Age: 54 Year
  Sex: Male
  Weight: 80.9 kg

DRUGS (14)
  1. SEREVENT [Suspect]
     Indication: ASTHMA
     Dosage: 100MCG PER DAY
     Route: 055
     Dates: start: 20120201, end: 20120312
  2. BECLOMETHASONE DIPROPIONATE [Concomitant]
     Dosage: 1000MCG PER DAY
  3. CALCIUM CARBONATE [Concomitant]
  4. VARENICLINE TARTRATE [Concomitant]
     Dosage: 2MG PER DAY
  5. COLECALCIFEROL [Concomitant]
  6. PREDNISOLONE [Concomitant]
  7. NICOTINE [Concomitant]
     Route: 062
  8. ZOPICLONE [Concomitant]
     Dosage: 7.5MG PER DAY
  9. DIAZEPAM [Concomitant]
     Dosage: 4MG PER DAY
  10. MIRTAZAPINE [Concomitant]
     Dosage: 30MG PER DAY
  11. THIAMINE HCL [Concomitant]
     Dosage: 100MG PER DAY
  12. DIHYDROCODEINE BITARTRATE INJ [Concomitant]
     Dosage: 120MG PER DAY
  13. GABAPENTIN [Concomitant]
     Dosage: 300MG PER DAY
  14. IBUPROFEN [Concomitant]
     Dosage: 1200MG PER DAY

REACTIONS (2)
  - NIGHTMARE [None]
  - MUSCLE SPASMS [None]
